FAERS Safety Report 4867986-2 (Version None)
Quarter: 2005Q4

REPORT INFORMATION
  Report Type: 
  Country: None (occurrence: None)
  Receive Date: 20051229
  Receipt Date: 20051216
  Transmission Date: 20060501
  Serious: Yes (Other)
  Sender: FDA-Public Use
  Company Number: HK-JNJFOC-20051204091

PATIENT
  Sex: Female
  Weight: 50.5 kg

DRUGS (11)
  1. INFLIXIMAB [Suspect]
     Indication: RHEUMATOID ARTHRITIS
     Dosage: WEEKS 0, 2, 6, 14
     Route: 042
  2. METHOTREXATE [Concomitant]
     Indication: RHEUMATOID ARTHRITIS
     Route: 048
  3. FOLIC ACID [Concomitant]
     Indication: RHEUMATOID ARTHRITIS
     Route: 048
  4. FORTIFER [Concomitant]
     Route: 048
  5. FORTIFER [Concomitant]
     Route: 048
  6. FORTIFER [Concomitant]
     Route: 048
  7. FORTIFER [Concomitant]
     Dosage: 2 TABLETS DAILY
     Route: 048
  8. PREDNISOLONE [Concomitant]
     Indication: RHEUMATOID ARTHRITIS
     Route: 048
  9. NAPROSYN [Concomitant]
     Indication: RHEUMATOID ARTHRITIS
     Route: 048
  10. FAMOTIDINE [Concomitant]
     Indication: GASTROINTESTINAL DISORDER THERAPY
     Dosage: AS NECESSARY
     Route: 048
  11. CALTRATE 600 [Concomitant]
     Indication: OSTEOPOROSIS PROPHYLAXIS
     Route: 048

REACTIONS (1)
  - PULMONARY TUBERCULOSIS [None]
